FAERS Safety Report 9677188 (Version 2)
Quarter: 2013Q4

REPORT INFORMATION
  Report Type: Spontaneous
  Country: US (occurrence: US)
  Receive Date: 20131108
  Receipt Date: 20131114
  Transmission Date: 20140711
  Serious: Yes (Death, Hospitalization)
  Sender: FDA-Public Use
  Company Number: US-MERCK-1311USA000110

PATIENT
  Sex: Male

DRUGS (2)
  1. TEMODAR [Suspect]
     Indication: BRAIN NEOPLASM
     Dosage: UNK MG, UNK
     Route: 048
     Dates: start: 20111129
  2. TEMODAR [Suspect]
     Indication: BRAIN NEOPLASM
     Dosage: UNK
     Route: 048
     Dates: start: 20111129

REACTIONS (1)
  - Brain neoplasm [Fatal]
